FAERS Safety Report 9928640 (Version 4)
Quarter: 2014Q2

REPORT INFORMATION
  Report Type: Spontaneous
  Country: JP (occurrence: JP)
  Receive Date: 20140227
  Receipt Date: 20140429
  Transmission Date: 20141212
  Serious: Yes (Other)
  Sender: FDA-Public Use
  Company Number: JP-PFIZER INC-2014046630

PATIENT
  Age: 78 Year
  Sex: Female
  Weight: 54 kg

DRUGS (8)
  1. LYRICA [Suspect]
     Indication: NEURALGIA
     Dosage: 75 MG, 1X/DAY
     Route: 048
     Dates: start: 20110520, end: 20111103
  2. LYRICA [Suspect]
     Dosage: 100 MG, DAILY (25MG IN THE MORNING AND 75MG BEFORE BEDTIME)
     Route: 048
     Dates: start: 20111104, end: 20120104
  3. LYRICA [Suspect]
     Dosage: 25 MG, 1X/DAY
     Route: 048
     Dates: start: 20120406
  4. LYRICA [Suspect]
     Dosage: 75 MG, 2X/DAY
     Route: 048
     Dates: start: 2013
  5. LYRICA [Suspect]
     Dosage: 25 MG, 2X/DAY
     Route: 048
  6. LOXOPROFEN SODIUM [Concomitant]
     Dosage: AS NEEDED
     Route: 048
     Dates: start: 20110422
  7. KAKKON-TO [Concomitant]
     Dosage: AS NEEDED
     Route: 048
     Dates: start: 20140127
  8. LOXONIN [Concomitant]
     Dosage: UNK
     Route: 062
     Dates: start: 20111007

REACTIONS (3)
  - Neurogenic bladder [Not Recovered/Not Resolved]
  - Weight increased [Recovered/Resolved]
  - Oedema [Recovered/Resolved]
